FAERS Safety Report 23083030 (Version 1)
Quarter: 2023Q4

REPORT INFORMATION
  Report Type: Report from Study
  Country: FR (occurrence: None)
  Receive Date: 20231019
  Receipt Date: 20231019
  Transmission Date: 20240110
  Serious: Yes (Life-Threatening, Hospitalization)
  Sender: FDA-Public Use
  Company Number: FR-ROCHE-2719956

PATIENT
  Age: 55 Year
  Sex: Female
  Weight: 68 kg

DRUGS (64)
  1. GLOFITAMAB [Suspect]
     Active Substance: GLOFITAMAB
     Indication: B-cell lymphoma refractory
     Dosage: ON 26/NOV/2020 FROM 12:12 PM TO 6:15 PM, THE PATIENT RECEIVED THE MOST RECENT DOSE OF RO7082859 (10
     Route: 042
     Dates: start: 20201119
  2. OBINUTUZUMAB [Suspect]
     Active Substance: OBINUTUZUMAB
     Indication: B-cell lymphoma refractory
     Dosage: THIS WAS THE MOST RECENT DOSE (1000 MG) OF OBINUTUZUMAB ADMINISTERED PRIOR TO AE/SAE ONSET STARTED A
     Route: 042
     Dates: start: 20201112
  3. FLUDEOXYGLUCOSE F-18 [Suspect]
     Active Substance: FLUDEOXYGLUCOSE F-18
     Indication: B-cell lymphoma refractory
     Dosage: DATE OF MOST RECENT DOSE OF STUDY DRUG?PRIOR TO SAE: 06/OCT/2020
     Route: 042
     Dates: start: 20201006
  4. ATARAX [Concomitant]
     Active Substance: HYDROXYZINE HYDROCHLORIDE
     Indication: Insomnia
     Route: 048
     Dates: end: 20201127
  5. BACTRIM [Concomitant]
     Active Substance: SULFAMETHOXAZOLE\TRIMETHOPRIM
     Indication: Infection prophylaxis
     Route: 048
  6. FUNGIZONE [Concomitant]
     Active Substance: AMPHOTERICIN B
     Indication: Infection prophylaxis
     Route: 065
     Dates: end: 20201127
  7. IMOVANE [Concomitant]
     Active Substance: ZOPICLONE
     Indication: Anxiety
     Route: 048
  8. ESOMEPRAZOLE [Concomitant]
     Active Substance: ESOMEPRAZOLE
     Indication: Prophylaxis
     Route: 048
     Dates: end: 20201127
  9. LEUCOVORIN CALCIUM [Concomitant]
     Active Substance: LEUCOVORIN CALCIUM
     Indication: Prophylaxis
     Route: 048
     Dates: start: 20210520
  10. VALACYCLOVIR HYDROCHLORIDE [Concomitant]
     Active Substance: VALACYCLOVIR HYDROCHLORIDE
     Indication: Infection prophylaxis
     Route: 048
  11. GLYCERIN\MINERAL OIL\PETROLATUM [Concomitant]
     Active Substance: GLYCERIN\MINERAL OIL\PETROLATUM
     Indication: Prophylaxis
     Route: 062
     Dates: end: 20201118
  12. LYRICA [Concomitant]
     Active Substance: PREGABALIN
     Indication: Pain prophylaxis
     Route: 048
     Dates: start: 20210607
  13. OXYCODONE HYDROCHLORIDE [Concomitant]
     Active Substance: OXYCODONE HYDROCHLORIDE
     Indication: Back pain
     Dosage: ONGOING: YES
     Route: 048
     Dates: start: 20201110
  14. AMITRIPTYLINE HYDROCHLORIDE [Concomitant]
     Active Substance: AMITRIPTYLINE HYDROCHLORIDE
     Indication: Back pain
     Route: 048
     Dates: start: 20201118, end: 20201124
  15. AMITRIPTYLINE HYDROCHLORIDE [Concomitant]
     Active Substance: AMITRIPTYLINE HYDROCHLORIDE
     Route: 048
     Dates: start: 20201125
  16. ACETAMINOPHEN [Concomitant]
     Active Substance: ACETAMINOPHEN
     Indication: Back pain
     Route: 048
     Dates: start: 20201121
  17. ACETAMINOPHEN [Concomitant]
     Active Substance: ACETAMINOPHEN
     Route: 042
     Dates: start: 20201112, end: 20201112
  18. ACETAMINOPHEN [Concomitant]
     Active Substance: ACETAMINOPHEN
     Route: 042
     Dates: start: 20201218, end: 20201218
  19. ACETAMINOPHEN [Concomitant]
     Active Substance: ACETAMINOPHEN
     Route: 042
     Dates: start: 20201119, end: 20201126
  20. FUROSEMIDE [Concomitant]
     Active Substance: FUROSEMIDE
     Indication: Prophylaxis
     Route: 065
     Dates: start: 20201123, end: 20201206
  21. ONDANSETRON [Concomitant]
     Active Substance: ONDANSETRON
     Indication: Vomiting
     Route: 065
     Dates: start: 20201124, end: 20210106
  22. ALIZAPRIDE HYDROCHLORIDE [Concomitant]
     Active Substance: ALIZAPRIDE HYDROCHLORIDE
     Indication: Vomiting
     Route: 065
     Dates: start: 20201124, end: 20210103
  23. CHLORPROMAZINE [Concomitant]
     Active Substance: CHLORPROMAZINE
     Indication: Anxiety
     Route: 065
     Dates: start: 20210103, end: 20210105
  24. HALDOL [Concomitant]
     Active Substance: HALOPERIDOL
     Indication: Anxiety
     Route: 065
     Dates: start: 20210107
  25. LOVENOX [Concomitant]
     Active Substance: ENOXAPARIN SODIUM
     Dosage: GIVEN FOR PROPHYLAXIS: YES
     Route: 042
     Dates: start: 20201120, end: 20201120
  26. DEXAMETHASONE [Concomitant]
     Active Substance: DEXAMETHASONE
     Indication: Neurotoxicity
     Route: 042
     Dates: start: 20201120, end: 20201120
  27. DEXAMETHASONE [Concomitant]
     Active Substance: DEXAMETHASONE
     Route: 042
     Dates: start: 20201127, end: 20201129
  28. MEROPENEM [Concomitant]
     Active Substance: MEROPENEM
     Route: 042
     Dates: start: 20201120, end: 20201120
  29. VANCOMYCIN [Concomitant]
     Active Substance: VANCOMYCIN
     Route: 042
     Dates: start: 20201120, end: 20201120
  30. VANCOMYCIN [Concomitant]
     Active Substance: VANCOMYCIN
     Route: 042
     Dates: start: 20201129, end: 20201129
  31. VANCOMYCIN [Concomitant]
     Active Substance: VANCOMYCIN
     Route: 065
     Dates: start: 20201129
  32. INNOHEP [Concomitant]
     Active Substance: TINZAPARIN SODIUM
     Indication: Jugular vein thrombosis
     Route: 058
     Dates: start: 20200202, end: 20210806
  33. INNOHEP [Concomitant]
     Active Substance: TINZAPARIN SODIUM
     Route: 058
     Dates: start: 20201123
  34. PANTOPRAZOLE [Concomitant]
     Active Substance: PANTOPRAZOLE
     Indication: Gastrooesophageal reflux disease
     Route: 048
     Dates: start: 20201118, end: 20201120
  35. HEXETIDINE [Concomitant]
     Active Substance: HEXETIDINE
     Dosage: ND CUP
     Route: 002
     Dates: start: 20201118, end: 20210520
  36. SODIUM BICARBONATE [Concomitant]
     Active Substance: SODIUM BICARBONATE
     Indication: Mucosal inflammation
     Dosage: ND CUP
     Route: 002
     Dates: start: 20201118, end: 20210520
  37. URSODIOL [Concomitant]
     Active Substance: URSODIOL
     Dates: start: 20200224, end: 20210806
  38. VALACYCLOVIR HYDROCHLORIDE [Concomitant]
     Active Substance: VALACYCLOVIR HYDROCHLORIDE
     Dosage: GIVEN FOR PROPHYLAXIS: YES
     Route: 048
     Dates: start: 20201118, end: 20210224
  39. MORPHINE [Concomitant]
     Active Substance: MORPHINE
     Indication: Pain
     Dates: start: 20201120, end: 20201125
  40. MORPHINE [Concomitant]
     Active Substance: MORPHINE
     Indication: Back pain
     Route: 042
     Dates: start: 20201118, end: 20201127
  41. MIDAZOLAM [Concomitant]
     Active Substance: MIDAZOLAM
     Indication: Insomnia
     Route: 048
     Dates: start: 20201120, end: 20201120
  42. OMEPRAZOLE [Concomitant]
     Active Substance: OMEPRAZOLE
     Dates: start: 20210316
  43. POTASSIUM CHLORIDE [Concomitant]
     Active Substance: POTASSIUM CHLORIDE
     Route: 048
     Dates: start: 20210202, end: 20210316
  44. ERYTHROPOIETIN [Concomitant]
     Active Substance: ERYTHROPOIETIN
     Indication: Anaemia
     Route: 058
     Dates: start: 20210316
  45. ERYTHROPOIETIN [Concomitant]
     Active Substance: ERYTHROPOIETIN
     Route: 058
     Dates: start: 20210202, end: 20210315
  46. ERYTHROPOIETIN [Concomitant]
     Active Substance: ERYTHROPOIETIN
     Route: 058
     Dates: start: 20201216, end: 20210315
  47. TRANSIPEG [Concomitant]
     Route: 048
     Dates: start: 20210316
  48. PRIMPERAN [Concomitant]
     Active Substance: METOCLOPRAMIDE HYDROCHLORIDE
     Route: 048
     Dates: start: 20210316
  49. ALGINATE [Concomitant]
     Route: 048
     Dates: start: 20210202
  50. ALPRAZOLAM [Concomitant]
     Active Substance: ALPRAZOLAM
     Route: 048
     Dates: start: 20210202
  51. AMIKACIN SULFATE [Concomitant]
     Active Substance: AMIKACIN SULFATE
     Dates: start: 20201127, end: 20201127
  52. AMIKACIN SULFATE [Concomitant]
     Active Substance: AMIKACIN SULFATE
     Dosage: 1 BOLUS
     Route: 065
     Dates: start: 20201127, end: 20201127
  53. METHYLPREDNISOLONE [Concomitant]
     Active Substance: METHYLPREDNISOLONE
     Route: 042
     Dates: start: 20201112, end: 20201112
  54. METHYLPREDNISOLONE [Concomitant]
     Active Substance: METHYLPREDNISOLONE
     Route: 042
     Dates: start: 20201218, end: 20201218
  55. METHYLPREDNISOLONE [Concomitant]
     Active Substance: METHYLPREDNISOLONE
     Route: 042
     Dates: start: 20201119, end: 20201126
  56. POLARAMINE [Concomitant]
     Active Substance: DEXCHLORPHENIRAMINE MALEATE
     Route: 042
     Dates: start: 20201112, end: 20201112
  57. POLARAMINE [Concomitant]
     Active Substance: DEXCHLORPHENIRAMINE MALEATE
     Route: 042
     Dates: start: 20201218, end: 20201218
  58. POLARAMINE [Concomitant]
     Active Substance: DEXCHLORPHENIRAMINE MALEATE
     Route: 042
     Dates: start: 20201119, end: 20201126
  59. RASBURICASE [Concomitant]
     Active Substance: RASBURICASE
     Dosage: MEDICATION DOSE 1.5 OTHER
     Route: 042
     Dates: start: 20201119, end: 20201126
  60. POTASSIUM [Concomitant]
     Active Substance: POTASSIUM
     Indication: Hypokalaemia
     Route: 042
     Dates: start: 20201126, end: 20201126
  61. SMECTA [Concomitant]
     Active Substance: MONTMORILLONITE
     Indication: Diarrhoea
     Route: 048
     Dates: start: 20201202, end: 20210121
  62. RACECADOTRIL [Concomitant]
     Active Substance: RACECADOTRIL
     Indication: Diarrhoea
     Route: 048
     Dates: start: 20201202, end: 20210121
  63. PIPERACILLIN SODIUM\TAZOBACTAM SODIUM [Concomitant]
     Active Substance: PIPERACILLIN SODIUM\TAZOBACTAM SODIUM
     Indication: Pyrexia
     Route: 048
     Dates: start: 20201120, end: 20201120
  64. ZOMETA [Concomitant]
     Active Substance: ZOLEDRONIC ACID
     Indication: Hypercalcaemia
     Route: 042
     Dates: start: 20201112, end: 20201112

REACTIONS (2)
  - Cytokine release syndrome [Recovered/Resolved]
  - Oxygen saturation decreased [Recovered/Resolved]

NARRATIVE: CASE EVENT DATE: 20201120
